FAERS Safety Report 23250682 (Version 3)
Quarter: 2023Q4

REPORT INFORMATION
  Report Type: Spontaneous
  Country: CN (occurrence: None)
  Receive Date: 20231201
  Receipt Date: 20231208
  Transmission Date: 20240110
  Serious: Yes (Other)
  Sender: FDA-Public Use
  Company Number: 2023A269131

PATIENT
  Age: 84 Year
  Sex: Female

DRUGS (9)
  1. OMEPRAZOLE [Interacting]
     Active Substance: OMEPRAZOLE
     Indication: Gastrooesophageal reflux disease
     Route: 042
     Dates: start: 20211111
  2. OMEPRAZOLE [Interacting]
     Active Substance: OMEPRAZOLE
     Indication: Gastrooesophageal reflux disease
  3. ROSUVASTATIN [Interacting]
     Active Substance: ROSUVASTATIN
     Route: 048
     Dates: start: 20211111
  4. FEBUXOSTAT [Suspect]
     Active Substance: FEBUXOSTAT
     Route: 048
     Dates: start: 20211111
  5. ISOSORBIDE MONONITRATE [Concomitant]
     Active Substance: ISOSORBIDE MONONITRATE
     Route: 048
     Dates: start: 20211111
  6. IRBESARTAN [Concomitant]
     Active Substance: IRBESARTAN
     Route: 048
     Dates: start: 20211111
  7. LEVAMLODIPINE [Concomitant]
     Active Substance: LEVAMLODIPINE
     Route: 048
     Dates: start: 20211111
  8. METOPROLOL SUCCINATE [Concomitant]
     Active Substance: METOPROLOL SUCCINATE
     Route: 048
     Dates: start: 20211111
  9. CEFMINOX [Concomitant]
     Active Substance: CEFMINOX
     Route: 042
     Dates: start: 20211111

REACTIONS (2)
  - Drug interaction [Unknown]
  - Rhabdomyolysis [Recovered/Resolved]
